FAERS Safety Report 22593052 (Version 1)
Quarter: 2023Q2

REPORT INFORMATION
  Report Type: Other
  Country: None (occurrence: HK)
  Receive Date: 20230613
  Receipt Date: 20230613
  Transmission Date: 20230722
  Serious: Yes (Life-Threatening, Hospitalization, Other)
  Sender: FDA-Public Use
  Company Number: HK-Eywa Pharma Inc.-2142629

PATIENT
  Age: 14 Year
  Sex: Male

DRUGS (10)
  1. BACLOFEN [Suspect]
     Active Substance: BACLOFEN
     Indication: Movement disorder
     Route: 065
  2. CARBAMAZEPINE [Suspect]
     Active Substance: CARBAMAZEPINE
     Route: 065
  3. CLOBAZAM [Suspect]
     Active Substance: CLOBAZAM
     Route: 065
  4. TETRABENAZINE [Suspect]
     Active Substance: TETRABENAZINE
     Route: 065
  5. MIDAZOLAM [Suspect]
     Active Substance: MIDAZOLAM
     Route: 042
  6. MORPHINE [Suspect]
     Active Substance: MORPHINE
     Route: 042
  7. KETAMINE [Suspect]
     Active Substance: KETAMINE
     Route: 042
  8. CLONIDINE [Suspect]
     Active Substance: CLONIDINE
     Route: 048
  9. CHLORAL HYDRATE [Suspect]
     Active Substance: CHLORAL HYDRATE
     Route: 065
  10. DIAZEPAM [Suspect]
     Active Substance: DIAZEPAM
     Route: 048

REACTIONS (8)
  - Hypoventilation [Recovering/Resolving]
  - Respiratory failure [Recovering/Resolving]
  - Rhabdomyolysis [Recovering/Resolving]
  - Acute kidney injury [Recovering/Resolving]
  - Hypotension [Recovering/Resolving]
  - Hyperphosphataemia [Recovering/Resolving]
  - Metabolic acidosis [Recovering/Resolving]
  - Sedation complication [Recovering/Resolving]
